FAERS Safety Report 6067116-8 (Version None)
Quarter: 2009Q1

REPORT INFORMATION
  Report Type: 
  Country: None (occurrence: None)
  Receive Date: 20090204
  Receipt Date: 20090204
  Transmission Date: 20090719
  Serious: Yes (Life-Threatening, Other)
  Sender: FDA-Public Use
  Company Number: None

PATIENT
  Sex: Female
  Weight: 90.7194 kg

DRUGS (1)
  1. RITALIN [Suspect]
     Indication: HYPERSOMNIA
     Dosage: 40 MGS 10 QID ORAL
     Route: 048
     Dates: start: 19940101

REACTIONS (3)
  - DEPRESSED LEVEL OF CONSCIOUSNESS [None]
  - PERFORMANCE STATUS DECREASED [None]
  - PRODUCT QUALITY ISSUE [None]
